FAERS Safety Report 20597125 (Version 1)
Quarter: 2022Q1

REPORT INFORMATION
  Report Type: Report from Study
  Country: US (occurrence: US)
  Receive Date: 20220315
  Receipt Date: 20220315
  Transmission Date: 20220423
  Serious: Yes (Death, Hospitalization, Other)
  Sender: FDA-Public Use
  Company Number: US-ADVANZ PHARMA-202201001431

PATIENT

DRUGS (3)
  1. CLONIDINE [Suspect]
     Active Substance: CLONIDINE
     Dosage: CLONIDINE (TD) (INGESTION PLUS OTHER))
     Route: 050
  2. AMLODIPINE [Suspect]
     Active Substance: AMLODIPINE BESYLATE
     Dosage: (INGESTION PLUS OTHER)
     Route: 050
  3. CARVEDILOL [Suspect]
     Active Substance: CARVEDILOL
     Dosage: (INGESTION PLUS OTHER)
     Route: 050

REACTIONS (1)
  - Death [Fatal]
